FAERS Safety Report 14154675 (Version 16)
Quarter: 2018Q2

REPORT INFORMATION
  Report Type: Spontaneous
  Country: FR (occurrence: FR)
  Receive Date: 20171102
  Receipt Date: 20180501
  Transmission Date: 20180711
  Serious: Yes (Hospitalization, Other)
  Sender: FDA-Public Use
  Company Number: FR-B.I. PHARMACEUTICALS,INC./RIDGEFIELD-2017-BI-059277

PATIENT
  Age: 33 Year
  Sex: Male
  Weight: 61 kg

DRUGS (29)
  1. DIFFU K [Suspect]
     Active Substance: POTASSIUM CHLORIDE
     Indication: PRODUCT USED FOR UNKNOWN INDICATION
     Route: 048
     Dates: start: 20160201, end: 20160201
  2. ROVAMYCINE [Suspect]
     Active Substance: SPIRAMYCIN
     Indication: PLEURISY
     Route: 042
     Dates: start: 20170128, end: 20170201
  3. KEPPRA [Concomitant]
     Active Substance: LEVETIRACETAM
     Indication: PRODUCT USED FOR UNKNOWN INDICATION
     Route: 048
  4. VINCRISTINE [Concomitant]
     Active Substance: VINCRISTINE
     Route: 065
  5. CARMUSTINE [Concomitant]
     Active Substance: CARMUSTINE
     Route: 065
  6. DIFFU K [Suspect]
     Active Substance: POTASSIUM CHLORIDE
     Route: 048
     Dates: start: 20170201
  7. SALBUTAMOL [Suspect]
     Active Substance: ALBUTEROL
     Indication: RESPIRATORY DISORDER
     Route: 055
     Dates: start: 20170128, end: 20170201
  8. URBANYL [Concomitant]
     Active Substance: CLOBAZAM
     Indication: PRODUCT USED FOR UNKNOWN INDICATION
     Route: 048
  9. LAMALINE (ACETAMINOPHEN\CAFFEINE\OPIUM) [Concomitant]
     Active Substance: ACETAMINOPHEN\CAFFEINE\OPIUM
     Indication: PRODUCT USED FOR UNKNOWN INDICATION
     Route: 065
     Dates: end: 20170201
  10. LEVETIRACETAM. [Concomitant]
     Active Substance: LEVETIRACETAM
     Indication: PRODUCT USED FOR UNKNOWN INDICATION
     Route: 065
  11. VINCRISTINE [Concomitant]
     Active Substance: VINCRISTINE
     Indication: RADIOTHERAPY
     Route: 065
     Dates: end: 201604
  12. PROCARBAZINE [Concomitant]
     Active Substance: PROCARBAZINE
     Route: 065
  13. TEMODAL [Suspect]
     Active Substance: TEMOZOLOMIDE
     Route: 048
     Dates: end: 201611
  14. MEDROL [Concomitant]
     Active Substance: METHYLPREDNISOLONE
     Indication: PRODUCT USED FOR UNKNOWN INDICATION
     Route: 065
  15. ZEBINIX [Concomitant]
     Active Substance: ESLICARBAZEPINE ACETATE
     Route: 065
  16. AUGMENTIN [Concomitant]
     Active Substance: AMOXICILLIN\CLAVULANATE POTASSIUM
     Indication: PRODUCT USED FOR UNKNOWN INDICATION
     Route: 065
     Dates: start: 20170128
  17. ZEBINIX [Concomitant]
     Active Substance: ESLICARBAZEPINE ACETATE
     Indication: PRODUCT USED FOR UNKNOWN INDICATION
     Route: 048
     Dates: end: 20170105
  18. CARMUSTINE [Concomitant]
     Active Substance: CARMUSTINE
     Indication: RADIOTHERAPY
     Route: 065
     Dates: end: 201604
  19. ATROVENT [Suspect]
     Active Substance: IPRATROPIUM BROMIDE
     Indication: RESPIRATORY DISORDER
     Dosage: TIME TO ONSET: 4 DAY(S)
     Route: 055
     Dates: start: 20170128, end: 20170201
  20. PROCARBAZINE [Concomitant]
     Active Substance: PROCARBAZINE
     Indication: RADIOTHERAPY
     Route: 065
     Dates: end: 201604
  21. TEMODAL [Suspect]
     Active Substance: TEMOZOLOMIDE
     Route: 048
     Dates: start: 201604
  22. SOLUPRED (PREDNISOLONE) [Suspect]
     Active Substance: PREDNISOLONE
     Indication: RESPIRATORY DISORDER
     Route: 048
     Dates: start: 20170128, end: 20170128
  23. TEMODAL [Suspect]
     Active Substance: TEMOZOLOMIDE
     Indication: ASTROCYTOMA
     Route: 048
     Dates: start: 201601, end: 20170105
  24. TEMODAL [Suspect]
     Active Substance: TEMOZOLOMIDE
     Route: 048
  25. TEMODAL [Suspect]
     Active Substance: TEMOZOLOMIDE
     Route: 048
     Dates: start: 20170105
  26. LYRICA [Concomitant]
     Active Substance: PREGABALIN
     Indication: PRODUCT USED FOR UNKNOWN INDICATION
     Route: 048
  27. ESOMEPRAZOLE [Concomitant]
     Active Substance: ESOMEPRAZOLE
     Indication: PRODUCT USED FOR UNKNOWN INDICATION
     Route: 048
  28. SALBUTAMOL [Suspect]
     Active Substance: ALBUTEROL
     Route: 055
  29. OFLOCET [Concomitant]
     Active Substance: OFLOXACIN
     Indication: PRODUCT USED FOR UNKNOWN INDICATION
     Route: 031
     Dates: start: 20170128

REACTIONS (2)
  - Hepatocellular injury [Recovered/Resolved]
  - Cholestasis [Unknown]

NARRATIVE: CASE EVENT DATE: 20170201
